FAERS Safety Report 18331005 (Version 2)
Quarter: 2020Q4

REPORT INFORMATION
  Report Type: Report from Study
  Country: GB (occurrence: GB)
  Receive Date: 20200930
  Receipt Date: 20201026
  Transmission Date: 20210113
  Serious: Yes (Other)
  Sender: FDA-Public Use
  Company Number: GB-JNJFOC-20200934204

PATIENT
  Age: 6 Decade
  Sex: Female

DRUGS (4)
  1. STELARA [Suspect]
     Active Substance: USTEKINUMAB
  2. STELARA [Suspect]
     Active Substance: USTEKINUMAB
     Indication: CROHN^S DISEASE
     Route: 058
     Dates: start: 20190909
  3. WARFARIN [Concomitant]
     Active Substance: WARFARIN
  4. ADCAL                              /00056901/ [Concomitant]
     Active Substance: CARBAZOCHROME

REACTIONS (1)
  - Basal cell carcinoma [Unknown]
